FAERS Safety Report 4380082-6 (Version None)
Quarter: 2004Q2

REPORT INFORMATION
  Report Type: 
  Country: None (occurrence: None)
  Receive Date: 20040617
  Receipt Date: 20040606
  Transmission Date: 20050107
  Serious: Yes (Hospitalization)
  Sender: FDA-Public Use
  Company Number: US-MERCK-0406USA00547

PATIENT
  Age: 89 Year
  Sex: Female

DRUGS (4)
  1. LIPITOR [Concomitant]
     Route: 065
  2. PLAVIX [Concomitant]
     Route: 065
  3. COZAAR [Concomitant]
     Route: 048
  4. VIOXX [Suspect]
     Indication: ARTHRITIS
     Route: 048
     Dates: start: 20030601, end: 20030601

REACTIONS (1)
  - CARDIAC FAILURE CONGESTIVE [None]
